FAERS Safety Report 7865431-6 (Version None)
Quarter: 2011Q4

REPORT INFORMATION
  Report Type: 
  Country: None (occurrence: None)
  Receive Date: 20111028
  Receipt Date: 20101223
  Transmission Date: 20120403
  Serious: No
  Sender: FDA-Public Use
  Company Number: US-GLAXOSMITHKLINE-A0901431A

PATIENT
  Age: 74 Year
  Sex: Male

DRUGS (12)
  1. DIGOXIN [Concomitant]
  2. WARFARIN SODIUM [Concomitant]
  3. DIOVAN [Concomitant]
  4. COREG CR [Concomitant]
  5. ADVAIR DISKUS 100/50 [Suspect]
     Indication: PRODUCT USED FOR UNKNOWN INDICATION
     Dosage: 1PUFF TWICE PER DAY
     Route: 055
     Dates: start: 20101001
  6. AMIODARONE HCL [Concomitant]
  7. UROXATRAL [Concomitant]
  8. TORSEMIDE [Concomitant]
  9. CRESTOR [Concomitant]
  10. AVODART [Concomitant]
  11. POTASSIUM CHLORIDE [Concomitant]
  12. BLOOD SUGAR BALANCE [Concomitant]

REACTIONS (2)
  - DYSPNOEA [None]
  - DRUG INEFFECTIVE [None]
